FAERS Safety Report 23394562 (Version 1)
Quarter: 2024Q1

REPORT INFORMATION
  Report Type: Spontaneous
  Country: US (occurrence: US)
  Receive Date: 20240112
  Receipt Date: 20240112
  Transmission Date: 20240409
  Serious: No
  Sender: FDA-Public Use
  Company Number: US-TAKEDA-2024TUS001568

PATIENT
  Age: 25 Year
  Sex: Female

DRUGS (1)
  1. ADZYNMA [Suspect]
     Active Substance: ADAMTS13, RECOMBINANT-KRHN
     Indication: Thrombotic thrombocytopenic purpura
     Dosage: 3120 INTERNATIONAL UNIT
     Route: 042

REACTIONS (2)
  - Maternal exposure during delivery [Recovered/Resolved]
  - No adverse event [Unknown]
